FAERS Safety Report 20734287 (Version 1)
Quarter: 2022Q2

REPORT INFORMATION
  Report Type: Spontaneous
  Country: US (occurrence: None)
  Receive Date: 20220420
  Receipt Date: 20220420
  Transmission Date: 20220721
  Serious: Yes (Death)
  Sender: FDA-Public Use
  Company Number: None

PATIENT
  Age: 65 Year
  Sex: Male

DRUGS (1)
  1. CAPECITABINE [Suspect]
     Active Substance: CAPECITABINE
     Indication: Tongue neoplasm malignant stage unspecified
     Dosage: FREQUENCY : TWICE A DAY;?
     Route: 048
     Dates: start: 20220328, end: 20220418

REACTIONS (1)
  - Disease progression [None]

NARRATIVE: CASE EVENT DATE: 20220418
